FAERS Safety Report 9645285 (Version 9)
Quarter: 2018Q2

REPORT INFORMATION
  Report Type: Report from Study
  Country: BE (occurrence: BE)
  Receive Date: 20131025
  Receipt Date: 20180614
  Transmission Date: 20180711
  Serious: Yes (Other)
  Sender: FDA-Public Use
  Company Number: PHHY2013BE036567

PATIENT
  Age: 39 Year
  Sex: Female

DRUGS (15)
  1. FLUOXETINE [Concomitant]
     Active Substance: FLUOXETINE HYDROCHLORIDE
     Indication: PRODUCT USED FOR UNKNOWN INDICATION
     Route: 065
  2. NACL [Concomitant]
     Active Substance: SODIUM CHLORIDE
     Indication: PRODUCT USED FOR UNKNOWN INDICATION
     Dosage: 1 G, QD
     Route: 065
  3. CITALOPRAM [Concomitant]
     Active Substance: CITALOPRAM HYDROBROMIDE
     Indication: PRODUCT USED FOR UNKNOWN INDICATION
     Dosage: UNK
     Route: 065
  4. TRADONAL [Concomitant]
     Active Substance: TRAMADOL HYDROCHLORIDE
     Indication: PRODUCT USED FOR UNKNOWN INDICATION
     Dosage: 50 MG, PRN
     Route: 065
  5. SULPIRIDE [Concomitant]
     Active Substance: SULPIRIDE
     Indication: PRODUCT USED FOR UNKNOWN INDICATION
     Dosage: UNK
     Route: 065
  6. SEROQUEL [Concomitant]
     Active Substance: QUETIAPINE FUMARATE
     Indication: PRODUCT USED FOR UNKNOWN INDICATION
     Route: 065
  7. MANIPREX [Concomitant]
     Active Substance: LITHIUM CARBONATE
     Indication: PRODUCT USED FOR UNKNOWN INDICATION
     Route: 065
  8. LEPONEX [Suspect]
     Active Substance: CLOZAPINE
     Indication: PRODUCT USED FOR UNKNOWN INDICATION
     Route: 065
  9. DEANXIT [Concomitant]
     Active Substance: FLUPENTIXOL DIHYDROCHLORIDE\MELITRACEN HYDROCHLORIDE
     Indication: PRODUCT USED FOR UNKNOWN INDICATION
     Route: 065
  10. LORMETAZEPAM [Concomitant]
     Active Substance: LORMETAZEPAM
     Indication: SLEEP DISORDER
     Dosage: UNK
     Route: 065
     Dates: start: 20121201
  11. TYSABRI [Concomitant]
     Active Substance: NATALIZUMAB
     Dosage: UNK
     Route: 065
     Dates: start: 20140923
  12. GILENYA [Suspect]
     Active Substance: FINGOLIMOD HYDROCHLORIDE
     Indication: MULTIPLE SCLEROSIS
     Dosage: 0.5 MG, QD
     Route: 048
     Dates: start: 20130114, end: 20130915
  13. TYSABRI [Concomitant]
     Active Substance: NATALIZUMAB
     Indication: PRODUCT USED FOR UNKNOWN INDICATION
     Dosage: UNK
     Route: 065
     Dates: start: 20090907, end: 20091028
  14. TYSABRI [Concomitant]
     Active Substance: NATALIZUMAB
     Dosage: UNK
     Route: 065
     Dates: start: 20110526, end: 20121214
  15. TYSABRI [Concomitant]
     Active Substance: NATALIZUMAB
     Dosage: UNK
     Route: 065
     Dates: start: 20140227, end: 20140812

REACTIONS (19)
  - JC polyomavirus test positive [Recovered/Resolved]
  - Headache [Recovered/Resolved]
  - Weight increased [Not Recovered/Not Resolved]
  - Insomnia [Unknown]
  - Anxiety [Unknown]
  - Urinary incontinence [Unknown]
  - Asthenia [Unknown]
  - Polyuria [Unknown]
  - Personality change [Unknown]
  - Depression [Unknown]
  - Constipation [Unknown]
  - Multiple sclerosis relapse [Unknown]
  - Central nervous system lesion [Unknown]
  - Headache [Unknown]
  - Increased appetite [Not Recovered/Not Resolved]
  - Stress [Unknown]
  - Muscular weakness [Unknown]
  - Visual acuity reduced [Unknown]
  - Hot flush [Unknown]

NARRATIVE: CASE EVENT DATE: 20130415
